FAERS Safety Report 20332685 (Version 1)
Quarter: 2022Q1

REPORT INFORMATION
  Report Type: Spontaneous
  Country: US (occurrence: None)
  Receive Date: 20220113
  Receipt Date: 20220113
  Transmission Date: 20220424
  Serious: Yes (Hospitalization)
  Sender: FDA-Public Use
  Company Number: None

PATIENT
  Age: 82 Year
  Sex: Female
  Weight: 63.8 kg

DRUGS (1)
  1. VANCOMYCIN [Suspect]
     Active Substance: VANCOMYCIN
     Indication: Postoperative wound infection
     Dosage: FREQUENCY : DAILY;?
     Route: 042
     Dates: start: 20211228, end: 20220110

REACTIONS (4)
  - Nausea [None]
  - Product administration error [None]
  - Dialysis [None]
  - Drug trough level [None]

NARRATIVE: CASE EVENT DATE: 20220110
